FAERS Safety Report 13295645 (Version 2)
Quarter: 2017Q1

REPORT INFORMATION
  Report Type: Report from Study
  Country: US (occurrence: US)
  Receive Date: 20170303
  Receipt Date: 20170322
  Transmission Date: 20170428
  Serious: Yes (Other)
  Sender: FDA-Public Use
  Company Number: US-EXELIXIS-CABO-17008401

PATIENT
  Age: 59 Year
  Sex: Female

DRUGS (5)
  1. CABOMETYX [Suspect]
     Active Substance: CABOZANTINIB S-MALATE
     Indication: RENAL CANCER
     Dosage: 40 MG, QD
     Route: 048
     Dates: start: 20170202, end: 20170221
  2. CALCIUM [Concomitant]
     Active Substance: CALCIUM
  3. MS CONTIN [Concomitant]
     Active Substance: MORPHINE SULFATE
  4. VITAMIN D [Concomitant]
     Active Substance: CHOLECALCIFEROL
  5. ZOMETA [Concomitant]
     Active Substance: ZOLEDRONIC ACID

REACTIONS (10)
  - Pulmonary embolism [Unknown]
  - Gastrooesophageal reflux disease [Unknown]
  - Fluid overload [Unknown]
  - Anaemia [Unknown]
  - Diarrhoea [Unknown]
  - Pleural effusion [Unknown]
  - Peripheral swelling [Recovering/Resolving]
  - Computerised tomogram abnormal [Unknown]
  - Thrombocytopenia [Recovering/Resolving]
  - Constipation [Recovered/Resolved]

NARRATIVE: CASE EVENT DATE: 20170227
